FAERS Safety Report 22976297 (Version 5)
Quarter: 2023Q4

REPORT INFORMATION
  Report Type: Other
  Country: BE (occurrence: None)
  Receive Date: 20230925
  Receipt Date: 20231218
  Transmission Date: 20240110
  Serious: Yes (Hospitalization)
  Sender: FDA-Public Use
  Company Number: BE-ROCHE-3423281

PATIENT
  Age: 59 Year
  Sex: Female
  Weight: 67 kg

DRUGS (16)
  1. OCRELIZUMAB [Suspect]
     Active Substance: OCRELIZUMAB
     Indication: Relapsing-remitting multiple sclerosis
     Dosage: DOSE LAST STUDY DRUG ADMIN PRIOR AE AND SAE 600 MG?TOTAL VOLUME PRIOR SAE AND AE 500 ML
     Route: 042
     Dates: start: 20191017, end: 20191017
  2. OCRELIZUMAB [Suspect]
     Active Substance: OCRELIZUMAB
     Dosage: TOTAL VOLUME ADMINISTERED 250 ML
     Route: 042
     Dates: start: 20191031, end: 20191031
  3. OCRELIZUMAB [Suspect]
     Active Substance: OCRELIZUMAB
     Dosage: TOTAL VOLUME ADMINISTERED 500 ML
     Route: 042
     Dates: start: 20200603, end: 20200603
  4. OCRELIZUMAB [Suspect]
     Active Substance: OCRELIZUMAB
     Dosage: TOTAL VOLUME ADMINISTERED 500 ML
     Route: 042
     Dates: start: 20201208, end: 20201208
  5. OCRELIZUMAB [Suspect]
     Active Substance: OCRELIZUMAB
     Dosage: TOTAL VOLUME ADMINISTERED 500 ML
     Route: 042
     Dates: start: 20210601, end: 20210601
  6. OCRELIZUMAB [Suspect]
     Active Substance: OCRELIZUMAB
     Dosage: TOTAL VOLUME ADMINISTERED 500 ML
     Route: 042
     Dates: start: 20211202, end: 20211202
  7. OCRELIZUMAB [Suspect]
     Active Substance: OCRELIZUMAB
     Dosage: TOTAL VOLUME ADMINISTERED 500 ML
     Route: 042
     Dates: start: 20220609, end: 20220609
  8. OCRELIZUMAB [Suspect]
     Active Substance: OCRELIZUMAB
     Dosage: TOTAL VOLUME ADMINISTERED 500 ML
     Route: 042
     Dates: start: 20221207, end: 20221207
  9. OCRELIZUMAB [Suspect]
     Active Substance: OCRELIZUMAB
     Dosage: TOTAL VOLUME ADMINISTERED 500 ML
     Route: 042
     Dates: start: 20230612, end: 20230612
  10. URI CRAN [Concomitant]
     Route: 048
     Dates: start: 2014
  11. ZALDIAR [Concomitant]
     Active Substance: ACETAMINOPHEN\TRAMADOL HYDROCHLORIDE
     Route: 048
     Dates: start: 2014
  12. CETIRIZINE [Concomitant]
     Active Substance: CETIRIZINE HYDROCHLORIDE
     Route: 048
     Dates: start: 20230612, end: 20230612
  13. SOLU-MEDROL [Concomitant]
     Active Substance: METHYLPREDNISOLONE SODIUM SUCCINATE
     Route: 042
     Dates: start: 20230612, end: 20230612
  14. ENOXAPARIN SODIUM [Concomitant]
     Active Substance: ENOXAPARIN SODIUM
     Route: 058
     Dates: start: 20230201, end: 20230205
  15. ACETAMINOPHEN [Concomitant]
     Active Substance: ACETAMINOPHEN
     Route: 042
     Dates: start: 20230201, end: 20230201
  16. KCL [Concomitant]
     Active Substance: POTASSIUM CHLORIDE
     Dosage: DOSE 40 OTHER
     Route: 042

REACTIONS (7)
  - Urinary tract infection [Recovering/Resolving]
  - Gastric antral vascular ectasia [Recovering/Resolving]
  - Ureteric dilatation [Recovering/Resolving]
  - Hepatomegaly [Recovering/Resolving]
  - Hypogammaglobulinaemia [Recovering/Resolving]
  - Urosepsis [Recovering/Resolving]
  - Acute kidney injury [Recovering/Resolving]

NARRATIVE: CASE EVENT DATE: 20230201
